FAERS Safety Report 6308871-9 (Version None)
Quarter: 2009Q3

REPORT INFORMATION
  Report Type: 
  Country: None (occurrence: None)
  Receive Date: 20090813
  Receipt Date: 20090114
  Transmission Date: 20100115
  Serious: No
  Sender: FDA-Public Use
  Company Number: US-ALLERGAN-0900408US

PATIENT
  Age: 89 Year
  Sex: Male

DRUGS (8)
  1. COMBIGAN [Suspect]
     Indication: GLAUCOMA
     Dosage: UNK, BID
     Route: 047
     Dates: start: 20090108
  2. XALATAN [Concomitant]
     Dosage: UNK, QD
  3. AZASITE [Concomitant]
     Dosage: UNK, QPM
  4. AMLODIPINE [Concomitant]
     Dosage: 5 MG, QD
  5. FINASTERIDE [Concomitant]
     Dosage: 5 MG, QD
  6. ZEMPLAR [Concomitant]
     Dosage: 2 X WEEK
  7. SALSALATE [Concomitant]
     Dosage: UP TO 3 X A DAY
  8. DOCUSATE [Concomitant]
     Dosage: 2-3 TIMES A DAY

REACTIONS (1)
  - NECK PAIN [None]
